FAERS Safety Report 12161892 (Version 1)
Quarter: 2016Q1

REPORT INFORMATION
  Report Type: Spontaneous
  Country: US (occurrence: None)
  Receive Date: 20160308
  Receipt Date: 20160308
  Transmission Date: 20160526
  Serious: No
  Sender: FDA-Public Use
  Company Number: None

PATIENT
  Age: 33 Year
  Sex: Female
  Weight: 0 kg

DRUGS (1)
  1. OTREXUP [Suspect]
     Active Substance: METHOTREXATE
     Dosage: SUBCUTANEOUS 057 20MG INJECTABLE
     Route: 058

REACTIONS (2)
  - Underdose [None]
  - Syringe issue [None]

NARRATIVE: CASE EVENT DATE: 20160307
